FAERS Safety Report 8544045-9 (Version None)
Quarter: 2012Q3

REPORT INFORMATION
  Report Type: 
  Country: None (occurrence: None)
  Receive Date: 20120727
  Receipt Date: 20120714
  Transmission Date: 20120928
  Serious: Yes (Congenital Anomaly)
  Sender: FDA-Public Use
  Company Number: DK-UCBSA-053880

PATIENT
  Age: 24 Hour
  Sex: Male

DRUGS (1)
  1. KEPPRA [Suspect]
     Indication: EPILEPSY
     Route: 064
     Dates: start: 20060201, end: 20080603

REACTIONS (3)
  - FOETAL EXPOSURE DURING PREGNANCY [None]
  - FOOT DEFORMITY [None]
  - GAIT DISTURBANCE [None]
